FAERS Safety Report 20035434 (Version 1)
Quarter: 2021Q4

REPORT INFORMATION
  Report Type: Spontaneous
  Country: US (occurrence: US)
  Receive Date: 20211104
  Receipt Date: 20211104
  Transmission Date: 20220304
  Serious: Yes (Other)
  Sender: FDA-Public Use
  Company Number: US-NOVOPROD-762124

PATIENT
  Age: 28 Year
  Sex: Female

DRUGS (1)
  1. FIASP [Suspect]
     Active Substance: INSULIN ASPART
     Indication: Type 1 diabetes mellitus
     Dosage: 20-30 IU A DAY
     Route: 058
     Dates: start: 20201011, end: 20201017

REACTIONS (2)
  - Blood glucose increased [Recovered/Resolved]
  - Product gel formation [Unknown]

NARRATIVE: CASE EVENT DATE: 20201013
